FAERS Safety Report 8447582-0 (Version None)
Quarter: 2012Q2

REPORT INFORMATION
  Report Type: 
  Country: None (occurrence: None)
  Receive Date: 20120619
  Receipt Date: 20120612
  Transmission Date: 20120825
  Serious: Yes (Other)
  Sender: FDA-Public Use
  Company Number: BR-ELI_LILLY_AND_COMPANY-BR201206004186

PATIENT
  Sex: Female

DRUGS (2)
  1. FORTEO [Suspect]
     Indication: OSTEOPOROSIS
     Dosage: 20 UG, QD
     Route: 058
     Dates: start: 20120601, end: 20120603
  2. PERINDOPRIL ERBUMINE [Concomitant]
     Dosage: UNK, QD
     Route: 048

REACTIONS (6)
  - DYSPNOEA [None]
  - SPEECH DISORDER [None]
  - BLOOD PRESSURE INCREASED [None]
  - HYPOKINESIA [None]
  - RENAL PAIN [None]
  - FEELING ABNORMAL [None]
